FAERS Safety Report 6947548-3 (Version None)
Quarter: 2010Q3

REPORT INFORMATION
  Report Type: 
  Country: None (occurrence: None)
  Receive Date: 20100827
  Receipt Date: 20090917
  Transmission Date: 20110219
  Serious: No
  Sender: FDA-Public Use
  Company Number: US-ABBOTT-09P-163-0598507-00

PATIENT
  Sex: Male

DRUGS (2)
  1. NIASPAN [Suspect]
     Indication: VASCULAR GRAFT
     Route: 048
  2. VYTORIN [Suspect]
     Indication: VASCULAR GRAFT
     Dosage: UNKNOWN DOSE

REACTIONS (1)
  - MEDICATION RESIDUE [None]
